FAERS Safety Report 7960280-2 (Version None)
Quarter: 2011Q4

REPORT INFORMATION
  Report Type: 
  Country: None (occurrence: None)
  Receive Date: 20111201
  Receipt Date: 20111115
  Transmission Date: 20120403
  Serious: Yes (Life-Threatening, Hospitalization)
  Sender: FDA-Public Use
  Company Number: 2011HGS-002547

PATIENT
  Age: 25 Year
  Sex: Female
  Weight: 122 kg

DRUGS (5)
  1. PRILOSEC (OMEPRAZOLE) (OMEPRAZOLE) [Concomitant]
  2. TYLENOL (PARACETAMOL) (PARACETAMOL) [Concomitant]
  3. PREDNISONE [Concomitant]
  4. BENLYSTA [Suspect]
     Indication: SYSTEMIC LUPUS ERYTHEMATOSUS
     Dosage: 10 MG/KG, 1 IN 2 WK, INTRAVENOUS DRIP
     Route: 041
     Dates: start: 20110829, end: 20110912
  5. PLAQUENIL (HYDROXYCHLOROQUINE SULFATE) (HYDROXYCHLOROQUINE SULFATE) [Concomitant]

REACTIONS (10)
  - LEUKOPENIA [None]
  - HEADACHE [None]
  - MALAISE [None]
  - FEELING ABNORMAL [None]
  - BLOOD PRESSURE DIASTOLIC INCREASED [None]
  - VOMITING [None]
  - CONDITION AGGRAVATED [None]
  - NEUTROPENIA [None]
  - NAUSEA [None]
  - PYREXIA [None]
